FAERS Safety Report 4448818-3 (Version None)
Quarter: 2004Q3

REPORT INFORMATION
  Report Type: 
  Country: None (occurrence: None)
  Receive Date: 20040909
  Receipt Date: 20040729
  Transmission Date: 20050211
  Serious: Yes (Hospitalization, Other)
  Sender: FDA-Public Use
  Company Number: 04-000574

PATIENT
  Age: 52 Year
  Sex: Female
  Weight: 78.5 kg

DRUGS (8)
  1. FEMRING (ESTRADIOL ACETATE) VAGINAL RING., 1MG [Suspect]
     Indication: MENOPAUSAL SYMPTOMS
     Dosage: SEE IMAGE
     Route: 067
     Dates: start: 20040428, end: 20040515
  2. FEMRING (ESTRADIOL ACETATE) VAGINAL RING., 1MG [Suspect]
     Indication: MENOPAUSAL SYMPTOMS
     Dosage: SEE IMAGE
     Route: 067
     Dates: start: 20040530
  3. VIOXX [Concomitant]
  4. PREDNISONE [Concomitant]
  5. REMICADE [Concomitant]
  6. PREVACID [Concomitant]
  7. ZANTAC [Concomitant]
  8. IMITREX [Concomitant]

REACTIONS (8)
  - CONDITION AGGRAVATED [None]
  - DIARRHOEA [None]
  - FOOT FRACTURE [None]
  - MEDICAL DEVICE COMPLICATION [None]
  - MIGRAINE [None]
  - MOTION SICKNESS [None]
  - POSTOPERATIVE THROMBOSIS [None]
  - PULMONARY THROMBOSIS [None]
